FAERS Safety Report 17353172 (Version 1)
Quarter: 2020Q1

REPORT INFORMATION
  Report Type: Report from Study
  Country: US (occurrence: US)
  Receive Date: 20200131
  Receipt Date: 20200131
  Transmission Date: 20200409
  Serious: Yes (Other)
  Sender: FDA-Public Use
  Company Number: US-ROCHE-2493416

PATIENT
  Sex: Female

DRUGS (9)
  1. LUCENTIS [Suspect]
     Active Substance: RANIBIZUMAB
     Indication: TYPE 2 DIABETES MELLITUS
     Route: 065
     Dates: start: 20170428
  2. LUCENTIS [Suspect]
     Active Substance: RANIBIZUMAB
     Indication: DIABETIC RETINOPATHY
  3. AZITHROMYCIN ANHYDROUS. [Concomitant]
     Active Substance: AZITHROMYCIN ANHYDROUS
     Dosage: TAKE 2 TAB ON DAY 1, TAKE 1 TAB ON DAY 2-5
     Route: 048
  4. GLUCOSE [Concomitant]
     Active Substance: DEXTROSE
  5. ATORVASTATIN [Concomitant]
     Active Substance: ATORVASTATIN
     Route: 048
  6. CETRIZINE [Concomitant]
     Active Substance: CETIRIZINE HYDROCHLORIDE
     Route: 048
  7. ALBUTEROL [SALBUTAMOL] [Concomitant]
     Active Substance: ALBUTEROL
  8. CAPECITABINE. [Concomitant]
     Active Substance: CAPECITABINE
     Dosage: FOR 14 DAYS
     Route: 048
  9. LUCENTIS [Suspect]
     Active Substance: RANIBIZUMAB
     Indication: MACULAR OEDEMA

REACTIONS (1)
  - Colon cancer [Unknown]
